FAERS Safety Report 21008274 (Version 1)
Quarter: 2022Q2

REPORT INFORMATION
  Report Type: Spontaneous
  Country: US (occurrence: None)
  Receive Date: 20220627
  Receipt Date: 20220627
  Transmission Date: 20220721
  Serious: Yes (Other)
  Sender: FDA-Public Use
  Company Number: US-Hikma Pharmaceuticals USA Inc.-US-H14001-22-01566

PATIENT
  Age: 61 Year
  Sex: Female

DRUGS (5)
  1. DOXYCYCLINE [Suspect]
     Active Substance: DOXYCYCLINE
     Indication: Ear infection
     Dosage: UNKNOWN
     Route: 048
  2. LINEZOLID [Suspect]
     Active Substance: LINEZOLID
     Indication: Ear infection
     Dosage: UNKNOWN
     Route: 065
  3. DAPTOMYCIN [Suspect]
     Active Substance: DAPTOMYCIN
     Indication: Ear infection
     Dosage: UNKNOWN
     Route: 065
  4. CLINDAMYCIN [Suspect]
     Active Substance: CLINDAMYCIN
     Indication: Ear infection
     Dosage: UNKNOWN
     Route: 065
  5. ORITAVANCIN [Suspect]
     Active Substance: ORITAVANCIN
     Indication: Ear infection
     Dosage: UNKNOWN
     Route: 065

REACTIONS (3)
  - Toxicity to various agents [Unknown]
  - Drug ineffective [Unknown]
  - Surgery [Unknown]
